FAERS Safety Report 9557945 (Version 1)
Quarter: 2013Q3

REPORT INFORMATION
  Report Type: Spontaneous
  Country: US (occurrence: None)
  Receive Date: 20130724
  Receipt Date: 20130724
  Transmission Date: 20140515
  Serious: No
  Sender: FDA-Public Use
  Company Number: PHEH2013US005102

PATIENT
  Age: 66 Year
  Sex: Female

DRUGS (3)
  1. GILENYA [Suspect]
     Indication: MULTIPLE SCLEROSIS
     Route: 048
     Dates: start: 20130228, end: 20130312
  2. CYMBALTA (DULOXETINE HYDROCHLORIDE) [Concomitant]
  3. MOBIC (MELOXICAM) [Concomitant]

REACTIONS (6)
  - Sleep disorder [None]
  - Concomitant disease aggravated [None]
  - Muscular weakness [None]
  - Chest discomfort [None]
  - Headache [None]
  - Dyspnoea [None]
